FAERS Safety Report 16902208 (Version 1)
Quarter: 2019Q4

REPORT INFORMATION
  Report Type: Spontaneous
  Country: NL (occurrence: NL)
  Receive Date: 20191010
  Receipt Date: 20191010
  Transmission Date: 20200122
  Serious: Yes (Other)
  Sender: FDA-Public Use
  Company Number: NL-TEVA-2019-NL-1118878

PATIENT
  Age: 83 Year
  Sex: Female
  Weight: 56 kg

DRUGS (11)
  1. MOVICOLON [Concomitant]
     Active Substance: POLYETHYLENE GLYCOL 3350\POTASSIUM CHLORIDE\SODIUM BICARBONATE\SODIUM CHLORIDE
  2. COLECALCIFEROL [Concomitant]
     Active Substance: CHOLECALCIFEROL
     Dosage: 25000IE/7DAY
     Dates: start: 20190820, end: 20190906
  3. OXAZEPAM 5MG [Concomitant]
     Dosage: 5 MG
     Dates: start: 20190827
  4. CIPROFLOXACINE TABLET, 500 MG (MILLIGRAM) [Suspect]
     Active Substance: CIPROFLOXACIN
     Indication: URINARY TRACT INFECTION
     Dosage: 500 MG
     Dates: start: 20190829, end: 20190904
  5. SUPRADYN FORTE TABLET 1DD1 [Concomitant]
     Dosage: 1 DF
     Dates: start: 20190904
  6. ORAMORPH [Concomitant]
     Active Substance: MORPHINE SULFATE
     Dosage: 2MG
     Dates: start: 20190822
  7. AMLODIPINE [Concomitant]
     Active Substance: AMLODIPINE BESYLATE
     Dosage: 5 MG
  8. FRAXIPARINE 0.3ML [Concomitant]
     Dates: start: 20190827, end: 20190903
  9. MELATONINE 1MG [Concomitant]
     Dosage: 1 MG
     Dates: start: 20190827, end: 20190903
  10. CLOPIDOGREL [Concomitant]
     Active Substance: CLOPIDOGREL BISULFATE
     Dosage: 75 MG
  11. PREDNISOLON 20MG [Concomitant]
     Dosage: 20 MG
     Dates: start: 20190904

REACTIONS (1)
  - Tubulointerstitial nephritis [Recovering/Resolving]

NARRATIVE: CASE EVENT DATE: 20190904
